FAERS Safety Report 10420528 (Version 1)
Quarter: 2014Q2

REPORT INFORMATION
  Report Type: Spontaneous
  Country: US (occurrence: None)
  Receive Date: 20140618
  Receipt Date: 20140618
  Transmission Date: 20141212
  Serious: Yes (Hospitalization, Other)
  Sender: FDA-Public Use
  Company Number: 099166

PATIENT
  Age: 65 Year
  Sex: Male
  Weight: 73.5 kg

DRUGS (10)
  1. LACOSAMIDE [Suspect]
     Indication: CONVULSION
     Dates: start: 20130912
  2. KEPPRA [Suspect]
     Indication: CONVULSION
     Route: 048
     Dates: start: 201310, end: 2013
  3. DILANTIN [Suspect]
     Indication: CONVULSION
     Dates: start: 1989, end: 20131010
  4. DIVALPROEX [Suspect]
     Indication: CONVULSION
     Dates: start: 2011, end: 20131010
  5. CLARITIN [Concomitant]
  6. ACCOMIN MULTIVITAMIN [Concomitant]
  7. VITAMIN D3 [Concomitant]
  8. NATURAL VITAMIN E [Concomitant]
  9. DIAZEPAM [Concomitant]
  10. ZYRTEC [Concomitant]

REACTIONS (3)
  - Fall [None]
  - Convulsion [None]
  - Gait disturbance [None]
